FAERS Safety Report 7720476-1 (Version None)
Quarter: 2011Q3

REPORT INFORMATION
  Report Type: 
  Country: None (occurrence: None)
  Receive Date: 20110831
  Receipt Date: 20110404
  Transmission Date: 20111222
  Serious: No
  Sender: FDA-Public Use
  Company Number: US-KINGPHARMUSA00001-K201100401

PATIENT
  Sex: Female

DRUGS (4)
  1. PENICILLIN G PROCAINE [Suspect]
     Dosage: UNK
  2. PROVENTIL [Concomitant]
  3. FLUTICASONE PROPIONATE [Concomitant]
     Route: 061
  4. ADVAIR DISKUS 100/50 [Concomitant]

REACTIONS (1)
  - DRUG HYPERSENSITIVITY [None]
